FAERS Safety Report 4369348-3 (Version None)
Quarter: 2004Q2

REPORT INFORMATION
  Report Type: 
  Country: None (occurrence: None)
  Receive Date: 20040527
  Receipt Date: 20040518
  Transmission Date: 20050107
  Serious: No
  Sender: FDA-Public Use
  Company Number: 04H-163-0261621-00

PATIENT

DRUGS (3)
  1. HEPARIN SODIUM [Suspect]
     Indication: RENAL ARTERY THROMBOSIS
  2. HEPARIN SODIUM [Suspect]
     Indication: RENAL VEIN THROMBOSIS
  3. HEPARIN SODIUM [Suspect]
     Indication: THROMBOSIS PROPHYLAXIS

REACTIONS (3)
  - COMPLICATIONS OF TRANSPLANTED KIDNEY [None]
  - HAEMATURIA [None]
  - RENAL VEIN THROMBOSIS [None]
